FAERS Safety Report 23571065 (Version 1)
Quarter: 2024Q1

REPORT INFORMATION
  Report Type: Spontaneous
  Country: FR (occurrence: FR)
  Receive Date: 20240227
  Receipt Date: 20240227
  Transmission Date: 20240410
  Serious: Yes (Other)
  Sender: FDA-Public Use
  Company Number: FR-SUN PHARMACEUTICAL INDUSTRIES LTD-2024RR-432795

PATIENT
  Age: 18 Year
  Sex: Female

DRUGS (2)
  1. ACETAMINOPHEN [Suspect]
     Active Substance: ACETAMINOPHEN
     Indication: Product used for unknown indication
     Dosage: 500 MILLIGRAM
     Route: 048
  2. PSEUDOEPHEDRINE [Suspect]
     Active Substance: PSEUDOEPHEDRINE
     Indication: Product used for unknown indication
     Dosage: 60 MILLIGRAM
     Route: 048

REACTIONS (6)
  - Self-medication [Unknown]
  - Hypertension [Unknown]
  - Posterior reversible encephalopathy syndrome [Unknown]
  - Lactic acidosis [Unknown]
  - C-reactive protein increased [Unknown]
  - Toxicity to various agents [Unknown]
